FAERS Safety Report 24799780 (Version 1)
Quarter: 2024Q4

REPORT INFORMATION
  Report Type: Spontaneous
  Country: US (occurrence: None)
  Receive Date: 20241231
  Receipt Date: 20241231
  Transmission Date: 20250114
  Serious: No
  Sender: Public
  Company Number: None

PATIENT
  Age: 7 Month
  Sex: Male
  Weight: 9.45 kg

DRUGS (5)
  1. BEYFORTUS [Suspect]
     Active Substance: NIRSEVIMAB-ALIP
     Indication: Antiviral prophylaxis
     Dosage: 1 ML ONCE INTRAMUSCULAR ?
     Route: 030
     Dates: start: 20241212
  2. PENTACEL [Suspect]
     Active Substance: DIPHTHERIA AND TETANUS TOXOIDS AND ACELLULAR PERTUSSIS ADSORBED, INACTIVATED POLIOVIRUS AND HAEMOPHI
  3. PREVNAR 20 [Suspect]
     Active Substance: PNEUMOCOCCAL 20-VALENT CONJUGATE VACCINE
  4. HUMAN ROTAVIRUS A [Suspect]
     Active Substance: HUMAN ROTAVIRUS A
  5. INFLUENZA VIRUS VACCINE [Suspect]
     Active Substance: INFLUENZA VIRUS VACCINE

REACTIONS (2)
  - Rash papular [None]
  - Rash erythematous [None]

NARRATIVE: CASE EVENT DATE: 20241230
